FAERS Safety Report 17497138 (Version 1)
Quarter: 2020Q1

REPORT INFORMATION
  Report Type: Spontaneous
  Country: US (occurrence: US)
  Receive Date: 20200304
  Receipt Date: 20200304
  Transmission Date: 20200409
  Serious: Yes (Life-Threatening, Hospitalization)
  Sender: FDA-Public Use
  Company Number: None

PATIENT
  Age: 35 Year
  Sex: Female
  Weight: 103.05 kg

DRUGS (13)
  1. CALCIUM [Concomitant]
     Active Substance: CALCIUM
  2. LISINOPRIL AND HYDROCHLOROTHIAZIDE [Suspect]
     Active Substance: HYDROCHLOROTHIAZIDE\LISINOPRIL
     Indication: HYPERTENSION
     Dosage: ?          QUANTITY:1 TABLET(S);?
     Route: 048
     Dates: start: 20200301, end: 20200302
  3. VITAMIN B COMPLEX [Concomitant]
     Active Substance: CYANOCOBALAMIN\DEXPANTHENOL\NIACINAMIDE\PYRIDOXINE HYDROCHLORIDE\RIBOFLAVIN 5^-PHOSPHATE SODIUM\THIAMINE HYDROCHLORIDE\VITAMIN B COMPLEX
  4. VITAMIN C [Concomitant]
     Active Substance: ASCORBIC ACID
  5. ZINC. [Concomitant]
     Active Substance: ZINC
  6. SPRINTEC [Concomitant]
     Active Substance: ETHINYL ESTRADIOL\NORGESTIMATE
  7. FISH OIL [Concomitant]
     Active Substance: FISH OIL
  8. MULTIVITAMIN WITH IRON [Concomitant]
     Active Substance: IRON\VITAMINS
  9. VITAMIN E [Concomitant]
     Active Substance: .ALPHA.-TOCOPHEROL
  10. PROBIOTIC [Concomitant]
     Active Substance: PROBIOTICS NOS
  11. TUMERIC [Concomitant]
     Active Substance: HERBALS\TURMERIC
  12. VITAMIN D [Concomitant]
     Active Substance: VITAMIN D NOS
  13. CBD [Concomitant]
     Active Substance: CANNABIDIOL

REACTIONS (11)
  - Burning sensation [None]
  - Hypotension [None]
  - Heart rate decreased [None]
  - Somnolence [None]
  - Headache [None]
  - Abdominal pain [None]
  - Muscle spasms [None]
  - Visual impairment [None]
  - Myalgia [None]
  - Vomiting [None]
  - Dizziness [None]

NARRATIVE: CASE EVENT DATE: 20200302
